FAERS Safety Report 7962657-8 (Version None)
Quarter: 2011Q4

REPORT INFORMATION
  Report Type: 
  Country: None (occurrence: None)
  Receive Date: 20111207
  Receipt Date: 20111205
  Transmission Date: 20120403
  Serious: Yes (Life-Threatening, Hospitalization)
  Sender: FDA-Public Use
  Company Number: JP-B.I. PHARMACEUTICALS,INC./RIDGEFIELD-2011-BP-27440NB

PATIENT
  Age: 5 Decade
  Sex: Male

DRUGS (2)
  1. WARFARIN SODIUM [Concomitant]
     Route: 065
  2. PRADAXA [Suspect]
     Indication: ATRIAL FIBRILLATION
     Route: 048

REACTIONS (3)
  - CEREBRAL HAEMORRHAGE [None]
  - VISUAL FIELD DEFECT [None]
  - ALTERED STATE OF CONSCIOUSNESS [None]
